FAERS Safety Report 4479565-X (Version None)
Quarter: 2004Q4

REPORT INFORMATION
  Report Type: 
  Country: None (occurrence: None)
  Receive Date: 20041015
  Receipt Date: 20030828
  Transmission Date: 20050328
  Serious: Yes (Death)
  Sender: FDA-Public Use
  Company Number: 2003IM000959

PATIENT
  Age: 73 Year
  Sex: Male

DRUGS (2)
  1. ADVAFERON (A643_INTERFERON ALFACON-1) [Suspect]
     Indication: HEPATITIS C
     Dosage: 18 MU; QD; SUBCUTANEOUS
     Route: 058
     Dates: start: 20020528, end: 20020927
  2. PIRMENOL HYDROCHLORIDE [Concomitant]

REACTIONS (1)
  - CEREBRAL HAEMORRHAGE [None]
